FAERS Safety Report 5824551-8 (Version None)
Quarter: 2008Q3

REPORT INFORMATION
  Report Type: 
  Country: None (occurrence: None)
  Receive Date: 20080722
  Receipt Date: 20080710
  Transmission Date: 20090109
  Serious: Yes (Death)
  Sender: FDA-Public Use
  Company Number: 1-16400911/MED-08131

PATIENT
  Age: 28 Year
  Sex: Male

DRUGS (2)
  1. TRAMADOL HCL [Suspect]
     Indication: ABDOMINAL DISCOMFORT
     Dosage: ORAL  SEVERAL MONTHS
     Route: 048
  2. BENZODIAZEPINE [Suspect]
     Indication: SLEEP DISORDER
     Dosage: ORAL  ONCE
     Route: 048

REACTIONS (11)
  - ACIDOSIS [None]
  - ACUTE HEPATIC FAILURE [None]
  - APNOEA [None]
  - CARDIAC ARREST [None]
  - HEPATIC NECROSIS [None]
  - HYPOGLYCAEMIA [None]
  - MULTI-ORGAN FAILURE [None]
  - OVERDOSE [None]
  - POISONING [None]
  - RENAL FAILURE ACUTE [None]
  - SHOCK [None]
